APPROVED DRUG PRODUCT: ORABLOC
Active Ingredient: ARTICAINE HYDROCHLORIDE; EPINEPHRINE BITARTRATE
Strength: 4%;EQ 0.018MG BASE/1.8ML (EQ 0.01MG BASE/ML)
Dosage Form/Route: INJECTABLE;INJECTION
Application: N022466 | Product #002
Applicant: PIERREL S.P.A.
Approved: Feb 26, 2010 | RLD: Yes | RS: Yes | Type: RX